FAERS Safety Report 8364456-4 (Version None)
Quarter: 2012Q2

REPORT INFORMATION
  Report Type: 
  Country: None (occurrence: None)
  Receive Date: 20120516
  Receipt Date: 20111202
  Transmission Date: 20120825
  Serious: Yes (Hospitalization)
  Sender: FDA-Public Use
  Company Number: US-ALEXION-A201101827

PATIENT
  Sex: Female

DRUGS (13)
  1. SOLIRIS [Suspect]
     Dosage: 900 MG, Q2W
     Route: 042
     Dates: start: 20080814
  2. TRAMADOL HYDROCHLORIDE [Concomitant]
     Dosage: UNK
  3. ASPIRIN [Concomitant]
     Dosage: UNK
  4. FLORASTOR [Concomitant]
     Dosage: UNK
  5. LABETALOL HCL [Concomitant]
     Dosage: UNK
  6. VITAMIN B-12 [Concomitant]
     Dosage: UNK
  7. CARDURA [Concomitant]
     Dosage: UNK
  8. NEXIUM [Concomitant]
     Dosage: UNK
  9. LASIX [Concomitant]
     Dosage: UNK
  10. POTASSIUM CHLORIDE [Concomitant]
     Dosage: UNK
  11. DIGOXIN [Concomitant]
     Dosage: UNK
  12. SOLIRIS [Suspect]
     Indication: PAROXYSMAL NOCTURNAL HAEMOGLOBINURIA
     Dosage: 600 MG, QW
     Route: 042
     Dates: start: 20080717, end: 20080801
  13. COZAAR [Concomitant]
     Dosage: UNK

REACTIONS (3)
  - ACUTE SINUSITIS [None]
  - ASTHMA [None]
  - CARDIAC FAILURE CONGESTIVE [None]
